FAERS Safety Report 24572779 (Version 1)
Quarter: 2024Q4

REPORT INFORMATION
  Report Type: Spontaneous
  Country: US (occurrence: US)
  Receive Date: 20241101
  Receipt Date: 20241101
  Transmission Date: 20250115
  Serious: No
  Sender: Tarsus Pharmaceuticals
  Company Number: US-TARSUS PHARMACEUTICALS-TSP-US-2024-000464

PATIENT
  Sex: Female

DRUGS (1)
  1. XDEMVY [Interacting]
     Active Substance: LOTILANER
     Indication: Product used for unknown indication
     Dosage: 1 DROP, BID
     Route: 047

REACTIONS (7)
  - Malaise [Unknown]
  - Drug interaction [Unknown]
  - Eyelid margin crusting [Unknown]
  - Lacrimation increased [Unknown]
  - Therapeutic product ineffective [Unknown]
  - Wrong technique in product usage process [Unknown]
  - Exposure via skin contact [None]
